FAERS Safety Report 6117803-8 (Version None)
Quarter: 2009Q1

REPORT INFORMATION
  Report Type: 
  Country: None (occurrence: None)
  Receive Date: 20090314
  Receipt Date: 20090128
  Transmission Date: 20090719
  Serious: No
  Sender: FDA-Public Use
  Company Number: US-ABBOTT-09P-163-0500651-00

PATIENT
  Sex: Female
  Weight: 61.29 kg

DRUGS (6)
  1. HUMIRA [Suspect]
     Indication: BEHCET'S SYNDROME
     Route: 058
     Dates: start: 20071001
  2. PREDNISONE [Concomitant]
     Indication: BEHCET'S SYNDROME
     Route: 048
  3. METHOTREXATE [Concomitant]
     Indication: BEHCET'S SYNDROME
     Route: 048
  4. FOLIC ACID [Concomitant]
     Indication: PROPHYLAXIS
     Route: 048
  5. ZOMIG [Concomitant]
     Indication: MIGRAINE
     Route: 048
  6. CALCIUM + VITAMIN D [Concomitant]
     Indication: ROUTINE HEALTH MAINTENANCE
     Dosage: UNKNOWN
     Route: 048

REACTIONS (2)
  - INCORRECT DOSE ADMINISTERED [None]
  - INJECTION SITE HAEMATOMA [None]
